FAERS Safety Report 10063227 (Version 2)
Quarter: 2014Q4

REPORT INFORMATION
  Report Type: Spontaneous
  Country: US (occurrence: US)
  Receive Date: 20140407
  Receipt Date: 20141003
  Transmission Date: 20150528
  Serious: No
  Sender: FDA-Public Use
  Company Number: US-009507513-1404USA002703

PATIENT
  Age: 68 Year
  Sex: Female

DRUGS (7)
  1. POSACONAZOLE [Suspect]
     Active Substance: POSACONAZOLE
     Indication: HAEMOPHILUS INFECTION
     Dosage: UNK
     Route: 048
  2. AMPHOTERICIN B. [Suspect]
     Active Substance: AMPHOTERICIN B
     Indication: HAEMOPHILUS INFECTION
  3. POSACONAZOLE [Suspect]
     Active Substance: POSACONAZOLE
     Indication: CANDIDA INFECTION
  4. AMPHOTERICIN B. [Suspect]
     Active Substance: AMPHOTERICIN B
     Indication: CANDIDA INFECTION
  5. POSACONAZOLE [Suspect]
     Active Substance: POSACONAZOLE
     Indication: ZYGOMYCOSIS
  6. ANTIMICROBIAL (UNSPECIFIED) [Concomitant]
     Active Substance: UNSPECIFIED INGREDIENT
  7. AMPHOTERICIN B. [Suspect]
     Active Substance: AMPHOTERICIN B
     Indication: ZYGOMYCOSIS

REACTIONS (1)
  - Drug ineffective [Unknown]
